FAERS Safety Report 9731931 (Version 2)
Quarter: 2014Q1

REPORT INFORMATION
  Report Type: Spontaneous
  Country: US (occurrence: US)
  Receive Date: 20131205
  Receipt Date: 20140101
  Transmission Date: 20141002
  Serious: Yes (Hospitalization, Other)
  Sender: FDA-Public Use
  Company Number: PHEH2013US025085

PATIENT
  Sex: Female

DRUGS (4)
  1. DIOVAN [Suspect]
     Dosage: 2 DF, DAILY (160 MG VALS)
  2. DILTIAZEM [Concomitant]
  3. CLONIDINE [Concomitant]
     Dosage: UNK UKN, UNK
  4. CLONIDINE [Concomitant]
     Dosage: 0.5 DF (1 MG), BID

REACTIONS (3)
  - Headache [Unknown]
  - Glaucoma [Unknown]
  - Blood pressure inadequately controlled [Unknown]
